FAERS Safety Report 9971772 (Version 1)
Quarter: 2014Q1

REPORT INFORMATION
  Report Type: Report from Study
  Country: US (occurrence: US)
  Receive Date: 20140306
  Receipt Date: 20140306
  Transmission Date: 20141002
  Serious: No
  Sender: FDA-Public Use
  Company Number: US-ABBVIE-13P-163-1150419-00

PATIENT
  Age: 62 Year
  Sex: Female

DRUGS (12)
  1. HUMIRA [Suspect]
     Indication: RHEUMATOID ARTHRITIS
     Dates: start: 20130511
  2. LANTUS SOLOSTAR INSULIN [Concomitant]
     Indication: DIABETES MELLITUS
     Dosage: 22 UNITS DAILY
     Route: 058
  3. NOVALOG FLEX PEN [Concomitant]
     Indication: DIABETES MELLITUS
     Dosage: SLIDING SCALE AFTER MEALS
     Route: 058
  4. METFORMIN [Concomitant]
     Indication: DIABETES MELLITUS
     Route: 048
  5. SYNTHROID [Concomitant]
     Indication: HYPOTHYROIDISM
     Dosage: 150 MICROGRAMS DAILY
  6. SINGULAIR [Concomitant]
     Indication: HYPERSENSITIVITY
     Dosage: DAILY
     Route: 048
  7. AMITRIPTYLINE [Concomitant]
     Indication: INSOMNIA
     Dosage: AT BEDTIME
     Route: 048
  8. PRAMIPEXOLE [Concomitant]
     Indication: MUSCLE SPASMS
     Dosage: HALF A TABLET DAILY
  9. PLAQUENIL [Concomitant]
     Indication: RHEUMATOID ARTHRITIS
     Route: 048
  10. CO Q 10 [Concomitant]
     Indication: VITAMIN SUPPLEMENTATION
     Route: 048
  11. MULTIVITAMIN [Concomitant]
     Indication: VITAMIN SUPPLEMENTATION
     Dosage: DAILY
     Route: 048
  12. BABY ASPIRIN [Concomitant]
     Indication: PROPHYLAXIS
     Dosage: 81 MILLIGRAMS DAILY
     Route: 048

REACTIONS (3)
  - Device malfunction [Recovered/Resolved]
  - Drug dose omission [Recovered/Resolved]
  - Injection site pain [Recovered/Resolved]
